FAERS Safety Report 15517174 (Version 1)
Quarter: 2018Q4

REPORT INFORMATION
  Report Type: Spontaneous
  Country: MX (occurrence: MX)
  Receive Date: 20181017
  Receipt Date: 20181017
  Transmission Date: 20190205
  Serious: Yes (Other)
  Sender: FDA-Public Use
  Company Number: MX-BAYER-2018-189809

PATIENT
  Age: 42 Year
  Sex: Female

DRUGS (1)
  1. FLANAX NOCTO [Suspect]
     Active Substance: DIPHENHYDRAMINE HYDROCHLORIDE\NAPROXEN SODIUM
     Dosage: UNK

REACTIONS (3)
  - Self-induced vomiting [Unknown]
  - Headache [Unknown]
  - Hypoaesthesia [Unknown]
